FAERS Safety Report 18651700 (Version 1)
Quarter: 2020Q4

REPORT INFORMATION
  Report Type: Other
  Country: JP (occurrence: JP)
  Receive Date: 20201222
  Receipt Date: 20201222
  Transmission Date: 20210114
  Serious: Yes (Hospitalization, Other)
  Sender: FDA-Public Use
  Company Number: JP-GENUS_LIFESCIENCES-USA-POI0580202000225

PATIENT
  Age: 47 Year
  Sex: Male

DRUGS (11)
  1. HYDROCODONE BITARTRATE AND ACETAMINOPHEN ORAL SOLUTION [Suspect]
     Active Substance: ACETAMINOPHEN\HYDROCODONE BITARTRATE
     Indication: PYREXIA
     Dosage: UNK
     Dates: start: 2019, end: 2019
  2. LYSOZYME HYDROCHLORIDE [Suspect]
     Active Substance: LYSOZYME HYDROCHLORIDE
     Indication: FATIGUE
  3. MAOTO [Suspect]
     Active Substance: HERBALS
     Indication: PYREXIA
     Dates: start: 2019, end: 2019
  4. L-CARBOCISTEINE [Suspect]
     Active Substance: CARBOCYSTEINE
     Indication: FATIGUE
  5. LYSOZYME HYDROCHLORIDE [Suspect]
     Active Substance: LYSOZYME HYDROCHLORIDE
     Indication: PYREXIA
     Dates: start: 2019, end: 2019
  6. MAOTO [Suspect]
     Active Substance: HERBALS
     Indication: FATIGUE
  7. L-CARBOCISTEINE [Suspect]
     Active Substance: CARBOCYSTEINE
     Indication: PYREXIA
     Dates: start: 2019, end: 2019
  8. CLARITHROMYCIN. [Suspect]
     Active Substance: CLARITHROMYCIN
     Indication: PYREXIA
     Dates: start: 2019, end: 2019
  9. CLARITHROMYCIN. [Suspect]
     Active Substance: CLARITHROMYCIN
     Indication: FATIGUE
  10. PREDNISONE. [Concomitant]
     Active Substance: PREDNISONE
     Indication: DRUG ERUPTION
     Dates: start: 2019
  11. HYDROCODONE BITARTRATE AND ACETAMINOPHEN ORAL SOLUTION [Suspect]
     Active Substance: ACETAMINOPHEN\HYDROCODONE BITARTRATE
     Indication: FATIGUE

REACTIONS (1)
  - Drug reaction with eosinophilia and systemic symptoms [Unknown]

NARRATIVE: CASE EVENT DATE: 2019
